FAERS Safety Report 7175305-4 (Version None)
Quarter: 2010Q4

REPORT INFORMATION
  Report Type: 
  Country: None (occurrence: None)
  Receive Date: 20101220
  Receipt Date: 20100305
  Transmission Date: 20110411
  Serious: No
  Sender: FDA-Public Use
  Company Number: US-AMGEN-TCS397978

PATIENT

DRUGS (2)
  1. ENBREL [Suspect]
     Indication: PSORIATIC ARTHROPATHY
     Dosage: 50 MG, QWK
     Route: 058
     Dates: start: 20030401
  2. ENBREL [Suspect]
     Indication: PSORIASIS

REACTIONS (7)
  - DRUG INEFFECTIVE [None]
  - INFECTION [None]
  - NASOPHARYNGITIS [None]
  - PHARYNGITIS STREPTOCOCCAL [None]
  - RHINORRHOEA [None]
  - SINUS HEADACHE [None]
  - VITAMIN D DEFICIENCY [None]
